FAERS Safety Report 8772771 (Version 1)
Quarter: 2012Q4

REPORT INFORMATION
  Report Type: 
  Country: GB (occurrence: GB)
  Receive Date: 20120907
  Receipt Date: 20120907
  Transmission Date: 20130627
  Serious: Yes (Other)
  Sender: FDA-Public Use
  Company Number: GB-PFIZER INC-2012217172

PATIENT

DRUGS (2)
  1. PREGABALIN [Suspect]
  2. METHADONE [Concomitant]

REACTIONS (1)
  - Drug abuse [Unknown]
